FAERS Safety Report 6911187-0 (Version None)
Quarter: 2010Q3

REPORT INFORMATION
  Report Type: 
  Country: None (occurrence: None)
  Receive Date: 20100806
  Receipt Date: 20100802
  Transmission Date: 20110219
  Serious: Yes (Death)
  Sender: FDA-Public Use
  Company Number: US-CELGENEUS-163-21880-10070565

PATIENT
  Sex: Male

DRUGS (1)
  1. REVLIMID [Suspect]
     Indication: NON-HODGKIN'S LYMPHOMA RECURRENT
     Route: 048
     Dates: start: 20100630, end: 20100702

REACTIONS (3)
  - ARRHYTHMIA [None]
  - RENAL FAILURE [None]
  - RESPIRATORY DISTRESS [None]
